FAERS Safety Report 16618219 (Version 1)
Quarter: 2020Q3

REPORT INFORMATION
  Report Type: Spontaneous
  Country: CN (occurrence: CN)
  Receive Date: 20190723
  Receipt Date: 20190723
  Transmission Date: 20201104
  Serious: Yes (Hospitalization)
  Sender: FDA-Public Use
  Company Number: CN-AMREGENT-20191559

PATIENT
  Age: 80 Year
  Sex: Female

DRUGS (5)
  1. CEFUROXIME SODIUM. [Suspect]
     Active Substance: CEFUROXIME SODIUM
     Dosage: POWDER INJECTION (1.5 GM)
     Route: 041
     Dates: start: 20190628, end: 20190629
  2. VENOFER [Suspect]
     Active Substance: IRON SUCROSE
     Dosage: 100 MG (100 MG,1 IN 1 D)
     Route: 041
     Dates: start: 20190628, end: 20190701
  3. PARECOXIB SODIUM. [Suspect]
     Active Substance: PARECOXIB SODIUM
     Dosage: POWDER INJECTION (40 MG)
     Route: 040
     Dates: start: 20190628, end: 20190628
  4. OMEPRAZOLE. [Suspect]
     Active Substance: OMEPRAZOLE
     Dosage: 40 MG
     Route: 040
     Dates: start: 20190628, end: 20190629
  5. SEVOFLURANE. [Suspect]
     Active Substance: SEVOFLURANE
     Dosage: 10 ML
     Route: 065
     Dates: start: 20190628, end: 20190628

REACTIONS (1)
  - Drug-induced liver injury [Recovering/Resolving]

NARRATIVE: CASE EVENT DATE: 20190629
